FAERS Safety Report 9381936 (Version 1)
Quarter: 2013Q3

REPORT INFORMATION
  Report Type: Spontaneous
  Country: VE (occurrence: VE)
  Receive Date: 20130703
  Receipt Date: 20130703
  Transmission Date: 20140515
  Serious: Yes (Life-Threatening, Hospitalization)
  Sender: FDA-Public Use
  Company Number: VE-B.I. PHARMACEUTICALS,INC./RIDGEFIELD-2013-RA-00171RA

PATIENT
  Age: 63 Year
  Sex: Male

DRUGS (6)
  1. PRADAXA [Suspect]
     Indication: ATRIAL FIBRILLATION
     Dosage: 220 MG
     Route: 048
     Dates: start: 201211, end: 20130530
  2. ATACAND [Concomitant]
     Route: 048
  3. CONCOR [Concomitant]
  4. BUMELEX [Concomitant]
  5. ALDACTONE [Concomitant]
  6. DIGOXINA [Concomitant]

REACTIONS (1)
  - Myocardial infarction [Recovered/Resolved]
